FAERS Safety Report 7274632-X (Version None)
Quarter: 2011Q1

REPORT INFORMATION
  Report Type: 
  Country: None (occurrence: None)
  Receive Date: 20110204
  Receipt Date: 20110128
  Transmission Date: 20110831
  Serious: Yes (Hospitalization)
  Sender: FDA-Public Use
  Company Number: CH-BRISTOL-MYERS SQUIBB COMPANY-15502313

PATIENT
  Age: 69 Year
  Sex: Female

DRUGS (6)
  1. OMEZOL [Concomitant]
  2. TRAMAL [Concomitant]
  3. ORENCIA [Suspect]
     Indication: RHEUMATOID ARTHRITIS
     Route: 042
     Dates: start: 20100301
  4. FLUDEX [Concomitant]
  5. METHOTREXATE [Concomitant]
  6. PREDNISONE [Concomitant]

REACTIONS (2)
  - CONFUSIONAL STATE [None]
  - APHASIA [None]
